FAERS Safety Report 23743099 (Version 1)
Quarter: 2024Q2

REPORT INFORMATION
  Report Type: Spontaneous
  Country: FR (occurrence: FR)
  Receive Date: 20240415
  Receipt Date: 20240415
  Transmission Date: 20240716
  Serious: Yes (Hospitalization, Other)
  Sender: FDA-Public Use
  Company Number: None

PATIENT
  Age: 53 Year
  Sex: Male
  Weight: 80 kg

DRUGS (16)
  1. PREGABALIN [Suspect]
     Active Substance: PREGABALIN
     Indication: Neuralgia
     Dosage: DOSAGE TEXT: 25 MG MORNING, NOON AND EVENING , 75 MG
     Route: 048
  2. IMODIUM [Concomitant]
     Active Substance: LOPERAMIDE HYDROCHLORIDE
     Indication: Product used for unknown indication
     Dosage: TIME INTERVAL: AS NECESSARY: DOSAGE TEXT: 2 MG IF NEEDED, 2 MG
     Route: 048
  3. PREDNISONE [Concomitant]
     Active Substance: PREDNISONE
     Indication: Product used for unknown indication
     Dosage: TIME INTERVAL: CYCLICAL: DOSAGE TEXT:80 MG(EVERY 01 CYCLE)
     Route: 048
  4. BRICANYL [Concomitant]
     Active Substance: TERBUTALINE SULFATE
     Indication: Product used for unknown indication
     Dosage: TIME INTERVAL: AS NECESSARY: DOSAGE TEXT: ?5 MG IF NEEDED, 5 MG
     Route: 055
  5. TOUJEO [Concomitant]
     Active Substance: INSULIN GLARGINE
     Indication: Type 2 diabetes mellitus
     Dosage: DOSAGE TEXT: ?40 IU, QD(EVERY 1 DAY IN THE EVENING)
     Route: 058
  6. LURBINECTEDIN [Suspect]
     Active Substance: LURBINECTEDIN
     Indication: Lung neoplasm malignant
     Dosage: TIME INTERVAL: CYCLICAL: DOSAGE TEXT: 6.4 MG, QD (3.2 MG/M2 I.E.)
     Route: 042
     Dates: start: 20200427, end: 20200615
  7. CANDESARTAN CILEXETIL [Suspect]
     Active Substance: CANDESARTAN CILEXETIL
     Indication: Hypertension
     Dosage: DOSAGE TEXT: ?16 MG, QD(EVERY 01 DAY IN THE MORNING)
     Route: 048
  8. OXYCONTIN [Concomitant]
     Active Substance: OXYCODONE HYDROCHLORIDE
     Indication: Cancer pain
     Dosage: DOSAGE TEXT:40 MG, QD(EVERY 1 DAY, 20 MG MORNING AND EVENING)
     Route: 048
     Dates: start: 2019
  9. HUMALOG [Concomitant]
     Active Substance: INSULIN LISPRO
     Indication: Type 2 diabetes mellitus
     Dosage: MEAL PROTOCOL
     Route: 058
  10. NICOTINE [Concomitant]
     Active Substance: NICOTINE
     Indication: Ex-tobacco user
     Dosage: DOSAGE TEXT: 1 DF, QD (1/DAY)(NICOPATCHLIB 21MG/24 HOURS, TRANSDERMAL PATCH)
     Route: 003
  11. OXYCODONE HYDROCHLORIDE [Concomitant]
     Active Substance: OXYCODONE HYDROCHLORIDE
     Indication: Cancer pain
     Dosage: TIME INTERVAL: AS NECESSARY: 10 MG (1 CAPSULE IF NECESSARY)?OXYNORM 10 MG, CAPSULE
     Route: 048
     Dates: start: 2019
  12. IMOVANE [Concomitant]
     Active Substance: ZOPICLONE
     Indication: Product used for unknown indication
     Dosage: DOSAGE TEXT: 7.5 MG, QD (DRY FILM TABLET, EVERY 1 DAY AT BEDTIME)??IMOVANE 7.5 MG, SCORED FILM-CO...
     Route: 048
  13. METFORMIN PAMOATE [Concomitant]
     Active Substance: METFORMIN PAMOATE
     Indication: Type 2 diabetes mellitus
     Dosage: DOSAGE TEXT: 2100 MG (EVERY 1 DAY 700 MG MORNING, NOON AND EVENING)
     Route: 048
  14. ESIDREX [Suspect]
     Active Substance: HYDROCHLOROTHIAZIDE
     Indication: Hypertension
     Dosage: DOSAGE TEXT: ?THE MORNING
     Route: 048
  15. ATROVENT [Concomitant]
     Active Substance: IPRATROPIUM BROMIDE
     Indication: Product used for unknown indication
     Dosage: DOSAGE TEXT: 0.5 MG IF NECESSARY
     Route: 055
  16. FUROSEMIDE [Suspect]
     Active Substance: FUROSEMIDE
     Indication: Generalised oedema
     Dosage: DOSAGE TEXT: THE MORNING
     Route: 048
     Dates: start: 20200611, end: 20200615

REACTIONS (1)
  - Acute kidney injury [Not Recovered/Not Resolved]

NARRATIVE: CASE EVENT DATE: 20200615
